FAERS Safety Report 17654977 (Version 1)
Quarter: 2020Q2

REPORT INFORMATION
  Report Type: Spontaneous
  Country: JP (occurrence: JP)
  Receive Date: 20200410
  Receipt Date: 20200410
  Transmission Date: 20200713
  Serious: Yes (Life-Threatening)
  Sender: FDA-Public Use
  Company Number: JP-ELI_LILLY_AND_COMPANY-JP202003011334

PATIENT
  Age: 63 Year
  Sex: Female

DRUGS (3)
  1. CEFAMEZIN SODIUM [Suspect]
     Active Substance: CEFAZOLIN SODIUM
     Indication: CELLULITIS
     Dosage: 1 G
     Route: 042
     Dates: start: 20200323, end: 20200323
  2. INSULIN GLARGINE [Suspect]
     Active Substance: INSULIN GLARGINE
     Indication: DIABETES MELLITUS
     Dosage: 6 INTERNATIONAL UNIT
     Route: 058
     Dates: start: 20200323, end: 20200323
  3. APIDRA SOLOSTAR [Concomitant]
     Active Substance: INSULIN GLULISINE
     Indication: DIABETES MELLITUS
     Dosage: 4 INTERNATIONAL UNIT
     Route: 058
     Dates: start: 20200323

REACTIONS (1)
  - Anaphylactic reaction [Recovering/Resolving]

NARRATIVE: CASE EVENT DATE: 20200324
